FAERS Safety Report 11341587 (Version 5)
Quarter: 2020Q2

REPORT INFORMATION
  Report Type: Report from Study
  Country: US (occurrence: US)
  Receive Date: 20150805
  Receipt Date: 20200521
  Transmission Date: 20200713
  Serious: Yes (Other)
  Sender: FDA-Public Use
  Company Number: US-SA-2015SA096430

PATIENT
  Age: 53 Year
  Sex: Female
  Weight: 50.8 kg

DRUGS (1)
  1. TERIFLUNOMIDE. [Suspect]
     Active Substance: TERIFLUNOMIDE
     Indication: MULTIPLE SCLEROSIS
     Dosage: 14 MG,QD
     Route: 048
     Dates: start: 20150605

REACTIONS (16)
  - Balance disorder [Unknown]
  - Diarrhoea [Unknown]
  - Sinus disorder [Unknown]
  - Blood cholesterol increased [Unknown]
  - Dizziness [Not Recovered/Not Resolved]
  - Dizziness [Unknown]
  - Cardiac flutter [Unknown]
  - Condition aggravated [Unknown]
  - Heart rate decreased [Unknown]
  - Visual impairment [Not Recovered/Not Resolved]
  - Memory impairment [Unknown]
  - Weight decreased [Recovered/Resolved]
  - Nausea [Unknown]
  - Blood pressure decreased [Unknown]
  - Alopecia [Recovered/Resolved]
  - Product dose omission [Unknown]

NARRATIVE: CASE EVENT DATE: 2015
